FAERS Safety Report 5536657-1 (Version None)
Quarter: 2007Q4

REPORT INFORMATION
  Report Type: 
  Country: None (occurrence: None)
  Receive Date: 20071206
  Receipt Date: 20070724
  Transmission Date: 20080405
  Serious: Yes (Life-Threatening, Other)
  Sender: FDA-Public Use
  Company Number: US-AMGEN-US235670

PATIENT
  Age: 63 Year
  Sex: Female
  Weight: 62.7 kg

DRUGS (1)
  1. ENBREL [Suspect]
     Indication: PSORIASIS
     Route: 058
     Dates: start: 20040101, end: 20070101

REACTIONS (4)
  - ABDOMINAL DISTENSION [None]
  - CHILLS [None]
  - HODGKIN'S DISEASE [None]
  - PYREXIA [None]
